FAERS Safety Report 9443122 (Version 12)
Quarter: 2020Q4

REPORT INFORMATION
  Report Type: Other
  Country: CA (occurrence: CA)
  Receive Date: 20130806
  Receipt Date: 20201029
  Transmission Date: 20210114
  Serious: Yes (Hospitalization, Other)
  Sender: FDA-Public Use
  Company Number: CA-ROCHE-1255971

PATIENT
  Age: 31 Year
  Sex: Male

DRUGS (10)
  1. XOLAIR [Suspect]
     Active Substance: OMALIZUMAB
     Route: 058
     Dates: start: 20141029
  2. XOLAIR [Suspect]
     Active Substance: OMALIZUMAB
     Indication: ASTHMA
     Route: 058
     Dates: start: 20130304
  3. SINGULAIR [Concomitant]
     Active Substance: MONTELUKAST SODIUM
  4. SYMBICORT [Concomitant]
     Active Substance: BUDESONIDE\FORMOTEROL FUMARATE DIHYDRATE
  5. BRICANYL [Concomitant]
     Active Substance: TERBUTALINE SULFATE
  6. XOLAIR [Suspect]
     Active Substance: OMALIZUMAB
     Route: 058
     Dates: start: 20130920
  7. XOLAIR [Suspect]
     Active Substance: OMALIZUMAB
     Route: 058
     Dates: start: 20170614
  8. XOLAIR [Suspect]
     Active Substance: OMALIZUMAB
     Route: 058
     Dates: start: 20150218
  9. XOLAIR [Suspect]
     Active Substance: OMALIZUMAB
     Route: 058
     Dates: start: 20171212
  10. SPIRIVA [Concomitant]
     Active Substance: TIOTROPIUM BROMIDE MONOHYDRATE

REACTIONS (14)
  - Inappropriate schedule of product administration [Unknown]
  - Dyspnoea [Unknown]
  - Tooth abscess [Unknown]
  - Gastroenteritis viral [Recovering/Resolving]
  - Musculoskeletal stiffness [Unknown]
  - Bronchitis [Recovering/Resolving]
  - Nuchal rigidity [Unknown]
  - Asthma [Unknown]
  - Nasopharyngitis [Unknown]
  - Injection site pain [Recovering/Resolving]
  - Bacterial infection [Unknown]
  - Injection site bruising [Unknown]
  - Headache [Unknown]
  - Hepatitis viral [Recovered/Resolved]

NARRATIVE: CASE EVENT DATE: 201306
